FAERS Safety Report 7795652-2 (Version None)
Quarter: 2011Q4

REPORT INFORMATION
  Report Type: 
  Country: None (occurrence: None)
  Receive Date: 20111004
  Receipt Date: 20110819
  Transmission Date: 20120403
  Serious: Yes (Other)
  Sender: FDA-Public Use
  Company Number: FR-GLAXOSMITHKLINE-B0741213A

PATIENT
  Age: 50 Year
  Sex: Male
  Weight: 80 kg

DRUGS (2)
  1. MODOPAR [Concomitant]
     Route: 065
  2. REQUIP [Suspect]
     Indication: PARKINSON'S DISEASE
     Dosage: 24MG PER DAY
     Route: 048

REACTIONS (5)
  - ANXIETY [None]
  - AGGRESSION [None]
  - CRYING [None]
  - DEPRESSION [None]
  - PARANOIA [None]
